FAERS Safety Report 24961380 (Version 2)
Quarter: 2025Q3

REPORT INFORMATION
  Report Type: Spontaneous
  Country: EU (occurrence: EU)
  Receive Date: 20250212
  Receipt Date: 20250809
  Transmission Date: 20251020
  Serious: Yes (Hospitalization, Other)
  Sender: ALEXION PHARMACEUTICALS
  Company Number: EU-SA-2024SA367080

PATIENT
  Age: 3 Month
  Sex: Female
  Weight: 3 kg

DRUGS (5)
  1. NIRSEVIMAB [Suspect]
     Active Substance: NIRSEVIMAB
     Indication: Respiratory syncytial virus immunisation
     Dates: start: 20241001, end: 20241001
  2. HEPATITIS B VIRUS VACCINE [Concomitant]
     Active Substance: HEPATITIS B VIRUS VACCINE
     Indication: Immunisation
     Route: 065
  3. PNEUMOCOCCAL CONJUGATE VACCINE NOS [Concomitant]
     Active Substance: PNEUMOCOCCAL CONJUGATE VACCINE
     Indication: Immunisation
     Route: 065
  4. DIPHTHERIA AND TETANUS TOXOIDS AND PERTUSSIS VACCINE ADSORBED AND HAEM [Concomitant]
     Active Substance: DIPHTHERIA AND TETANUS TOXOIDS AND PERTUSSIS VACCINE ADSORBED AND HAEMOPHILUS B CONJUGATE VACCINE
     Indication: Immunisation
     Route: 065
  5. CHOLECALCIFEROL [Concomitant]
     Active Substance: CHOLECALCIFEROL
     Dosage: 2 DROP, QD
     Route: 065

REACTIONS (11)
  - Respiratory syncytial virus bronchiolitis [Unknown]
  - Vomiting [Unknown]
  - Secretion discharge [Unknown]
  - Diarrhoea [Unknown]
  - Cough [Unknown]
  - Rhinitis [Unknown]
  - Rhonchi [Unknown]
  - Crying [Unknown]
  - Asthenia [Unknown]
  - Somnolence [Unknown]
  - Drug ineffective [Unknown]

NARRATIVE: CASE EVENT DATE: 20241201
